FAERS Safety Report 19973784 (Version 2)
Quarter: 2022Q1

REPORT INFORMATION
  Report Type: Report from Study
  Country: US (occurrence: None)
  Receive Date: 20211020
  Receipt Date: 20220114
  Transmission Date: 20220423
  Serious: Yes (Life-Threatening)
  Sender: FDA-Public Use
  Company Number: US-ROCHE-2937244

PATIENT
  Age: 64 Year
  Sex: Female
  Weight: 122 kg

DRUGS (3)
  1. ATEZOLIZUMAB [Suspect]
     Active Substance: ATEZOLIZUMAB
     Indication: Ovarian cancer
     Dosage: 17/MAR/2021:LAST ADMINISTERED DOSE
     Route: 041
     Dates: start: 20210317, end: 20210317
  2. BEVACIZUMAB [Suspect]
     Active Substance: BEVACIZUMAB
     Indication: Ovarian cancer
     Dosage: 17/MAR/2021:LAST DOSE ADMINISTERED
     Route: 042
     Dates: start: 20210317, end: 20210317
  3. DOXORUBICIN [Suspect]
     Active Substance: DOXORUBICIN
     Indication: Ovarian cancer
     Dosage: 17/MAR/2021:LAST DOSE ADMINISTERED
     Route: 042
     Dates: start: 20210317, end: 20210317

REACTIONS (1)
  - Hypertension [Recovering/Resolving]

NARRATIVE: CASE EVENT DATE: 20210319
